FAERS Safety Report 11049974 (Version 1)
Quarter: 2015Q2

REPORT INFORMATION
  Report Type: Spontaneous
  Country: US (occurrence: US)
  Receive Date: 20150420
  Receipt Date: 20150420
  Transmission Date: 20150821
  Serious: No
  Sender: FDA-Public Use
  Company Number: US-PURDUE-USA-2015-0121333

PATIENT
  Sex: Male

DRUGS (2)
  1. OXYCODONE HCL IR CAPSULES [Concomitant]
     Active Substance: OXYCODONE HYDROCHLORIDE
     Indication: PRODUCT USED FOR UNKNOWN INDICATION
     Route: 048
  2. OXYCONTIN [Suspect]
     Active Substance: OXYCODONE HYDROCHLORIDE
     Indication: PAIN
     Dosage: 40 MG, Q8H
     Route: 048

REACTIONS (2)
  - Malabsorption [Recovered/Resolved]
  - Medication residue present [Recovered/Resolved]
